FAERS Safety Report 8291819 (Version 4)
Quarter: 2023Q1

REPORT INFORMATION
  Report Type: Spontaneous
  Country: US (occurrence: None)
  Receive Date: 20111214
  Receipt Date: 20230124
  Transmission Date: 20230418
  Serious: Yes (Hospitalization, Other)
  Sender: FDA-Public Use
  Company Number: US-ROCHE-1019894

PATIENT
  Age: 57 Year
  Sex: Female
  Weight: 68.100 kg

DRUGS (4)
  1. BONIVA [Suspect]
     Active Substance: IBANDRONATE SODIUM
     Indication: Osteoporosis
     Route: 048
     Dates: start: 200608, end: 201004
  2. BONIVA [Suspect]
     Active Substance: IBANDRONATE SODIUM
     Route: 048
     Dates: start: 200705, end: 201004
  3. FOSAMAX [Suspect]
     Active Substance: ALENDRONATE SODIUM
     Indication: Osteoporosis
     Route: 048
     Dates: start: 200009, end: 200608
  4. FOSAMAX [Suspect]
     Active Substance: ALENDRONATE SODIUM
     Route: 048
     Dates: start: 2002, end: 2007

REACTIONS (16)
  - Femur fracture [Unknown]
  - Bone disorder [Unknown]
  - Anxiety [Unknown]
  - Emotional distress [Unknown]
  - Low turnover osteopathy [Unknown]
  - Depression [Unknown]
  - Stress fracture [Unknown]
  - Hip fracture [Unknown]
  - Blood loss anaemia [Unknown]
  - Arthralgia [Unknown]
  - Urticaria [Unknown]
  - Fall [Unknown]
  - Decubitus ulcer [Unknown]
  - Constipation [Unknown]
  - Dermatitis [Unknown]
  - Gait disturbance [Unknown]

NARRATIVE: CASE EVENT DATE: 20100101
